FAERS Safety Report 4489740-6 (Version None)
Quarter: 2004Q4

REPORT INFORMATION
  Report Type: 
  Country: None (occurrence: None)
  Receive Date: 20041101
  Receipt Date: 20030605
  Transmission Date: 20050328
  Serious: Yes (Disabling, Other)
  Sender: FDA-Public Use
  Company Number: US-MERCK-0306USA00648

PATIENT
  Age: 60 Year
  Sex: Female
  Weight: 73 kg

DRUGS (25)
  1. VIOXX [Suspect]
     Route: 048
     Dates: start: 19990601, end: 19990701
  2. VIOXX [Suspect]
     Route: 048
     Dates: start: 19990701, end: 19990101
  3. VIOXX [Suspect]
     Route: 048
     Dates: start: 19990818, end: 19991101
  4. VIOXX [Suspect]
     Route: 048
     Dates: start: 20000205, end: 20000101
  5. VIOXX [Suspect]
     Route: 048
     Dates: start: 20001201, end: 20001201
  6. VIOXX [Suspect]
     Route: 048
     Dates: start: 20001201, end: 20010101
  7. VIOXX [Suspect]
     Route: 048
     Dates: start: 20001108, end: 20001207
  8. PROMETHAZINE [Concomitant]
     Route: 065
  9. FUROSEMIDE [Concomitant]
     Route: 065
  10. AMBIEN [Concomitant]
     Route: 065
  11. ALPRAZOLAM [Concomitant]
     Route: 065
  12. ACIPHEX [Concomitant]
     Route: 065
  13. PRILOSEC [Concomitant]
     Route: 065
  14. BEL-PHEN-ERGOT S TABS [Concomitant]
     Indication: MIGRAINE
     Route: 065
  15. BUTALBITAL [Concomitant]
     Route: 065
  16. ACETAMINOPHEN AND CAFFEINE [Concomitant]
     Route: 065
  17. BUSPAR [Concomitant]
     Route: 065
  18. [THERAPY UNSPECIFIED] [Concomitant]
     Route: 065
  19. LIPITOR [Concomitant]
     Route: 065
  20. PREMARIN [Concomitant]
     Route: 065
  21. SYNTHROID [Concomitant]
     Route: 065
  22. ESTRATEST [Concomitant]
     Route: 065
  23. INDAPAMIDE [Concomitant]
     Route: 065
  24. DULCOLAX [Concomitant]
     Route: 065
  25. DIFLUCAN [Concomitant]
     Route: 065

REACTIONS (50)
  - ADHESION [None]
  - ADVERSE EVENT [None]
  - AEROPHAGIA [None]
  - ANAPHYLACTIC REACTION [None]
  - BREAST PAIN [None]
  - CORONARY ARTERY ATHEROSCLEROSIS [None]
  - DECREASED APPETITE [None]
  - DEPRESSED LEVEL OF CONSCIOUSNESS [None]
  - DRUG HYPERSENSITIVITY [None]
  - DRUG INEFFECTIVE [None]
  - DRUG INTOLERANCE [None]
  - DYSPHAGIA [None]
  - DYSURIA [None]
  - GASTROINTESTINAL MOTILITY DISORDER [None]
  - GLOSSODYNIA [None]
  - HEADACHE [None]
  - HELICOBACTER INFECTION [None]
  - HOT FLUSH [None]
  - LIMB INJURY [None]
  - LIPOMATOSIS [None]
  - LYMPHADENOPATHY [None]
  - MALAISE [None]
  - MICROCYTIC ANAEMIA [None]
  - MIGRAINE [None]
  - NASAL CONGESTION [None]
  - NASAL POLYPS [None]
  - NASAL SEPTUM DEVIATION [None]
  - NASAL TURBINATE HYPERTROPHY [None]
  - NAUSEA [None]
  - NEUROPATHY PERIPHERAL [None]
  - ODYNOPHAGIA [None]
  - OEDEMA PERIPHERAL [None]
  - OESOPHAGEAL CANDIDIASIS [None]
  - OESOPHAGITIS ULCERATIVE [None]
  - ORAL CANDIDIASIS [None]
  - PAIN [None]
  - PALPITATIONS [None]
  - PANCREATIC INSUFFICIENCY [None]
  - PHOTOSENSITIVITY REACTION [None]
  - RHEUMATOID ARTHRITIS [None]
  - SINUSITIS [None]
  - SJOGREN'S SYNDROME [None]
  - STRESS SYMPTOMS [None]
  - SUBCUTANEOUS NODULE [None]
  - SYNCOPE [None]
  - THIRST [None]
  - URETHRAL DISORDER [None]
  - URINARY TRACT INFECTION [None]
  - VAGINAL DISCHARGE [None]
  - VOMITING [None]
